FAERS Safety Report 4866109-3 (Version None)
Quarter: 2005Q4

REPORT INFORMATION
  Report Type: 
  Country: None (occurrence: None)
  Receive Date: 20051222
  Receipt Date: 20051212
  Transmission Date: 20060501
  Serious: Yes (Other)
  Sender: FDA-Public Use
  Company Number: 2005-12-0522

PATIENT
  Age: 8 Year
  Sex: Male

DRUGS (1)
  1. AERIUS (DESLORATADINE) TABLETS [Suspect]
     Dosage: ORAL
     Route: 048
     Dates: start: 20040101

REACTIONS (2)
  - AGGRESSION [None]
  - MENTAL DISORDER [None]
